FAERS Safety Report 10064154 (Version 1)
Quarter: 2014Q2

REPORT INFORMATION
  Report Type: Spontaneous
  Country: US (occurrence: None)
  Receive Date: 20140407
  Receipt Date: 20140407
  Transmission Date: 20141212
  Serious: Yes (Other)
  Sender: FDA-Public Use
  Company Number: None

PATIENT
  Age: 27 Year
  Sex: Female

DRUGS (2)
  1. RHOPHYLAC [Suspect]
     Indication: PROPHYLAXIS AGAINST RH ISOIMMUNISATION
     Dosage: 13 VIALS
     Route: 042
     Dates: start: 20111217, end: 20111217
  2. RHOPHYLAC [Suspect]
     Indication: POSTPARTUM STATE
     Dosage: 13 VIALS
     Route: 042
     Dates: start: 20111217, end: 20111217

REACTIONS (1)
  - Rhesus antibodies positive [None]
